FAERS Safety Report 10404461 (Version 1)
Quarter: 2014Q1

REPORT INFORMATION
  Report Type: Spontaneous
  Country: US (occurrence: None)
  Receive Date: 20140306
  Receipt Date: 20140306
  Transmission Date: 20141002
  Serious: Yes (Other)
  Sender: FDA-Public Use
  Company Number: 163-21880-12112340

PATIENT
  Age: 81 Year
  Sex: Male

DRUGS (1)
  1. REVLIMID (LENALIDOMIDE) (5 MILLIGRAM, CAPSULES) [Suspect]
     Indication: PLASMA CELL MYELOMA
     Dosage: 5  MG, 21 IN 21 D, PO  OCT/2012 - PERMANENTLY DISCONTINUED
     Dates: start: 201210

REACTIONS (3)
  - Fatigue [None]
  - Asthenopia [None]
  - Asthenia [None]
